FAERS Safety Report 9167591 (Version 2)
Quarter: 2013Q2

REPORT INFORMATION
  Report Type: Spontaneous
  Country: AU (occurrence: None)
  Receive Date: 20130304
  Receipt Date: 20130508
  Transmission Date: 20140414
  Serious: Yes (Hospitalization)
  Sender: FDA-Public Use
  Company Number: 2013000027

PATIENT
  Age: 84 Year
  Sex: Female

DRUGS (3)
  1. ACEON (PERINDOPRIL ERBUMINE) TABLET [Suspect]
     Indication: HYPERTENSION
     Route: 048
     Dates: start: 201009, end: 201101
  2. ASPIRIN (ACETYLSALICYLIC ACID) [Concomitant]
  3. OMEGA 3 FISH OIL (FISH OIL) [Concomitant]

REACTIONS (12)
  - Atrial fibrillation [None]
  - Palpitations [None]
  - Muscle spasms [None]
  - Muscle spasms [None]
  - Feeling abnormal [None]
  - Lethargy [None]
  - Muscular weakness [None]
  - Abdominal discomfort [None]
  - Tinnitus [None]
  - Middle insomnia [None]
  - Family stress [None]
  - Anxiety [None]
